FAERS Safety Report 5419723-0 (Version None)
Quarter: 2007Q3

REPORT INFORMATION
  Report Type: 
  Country: None (occurrence: None)
  Receive Date: 20070820
  Receipt Date: 20070807
  Transmission Date: 20080115
  Serious: Yes (Hospitalization)
  Sender: FDA-Public Use
  Company Number: JP-ROCHE-493919

PATIENT
  Age: 38 Year
  Sex: Female

DRUGS (13)
  1. TAMIFLU [Suspect]
     Route: 048
     Dates: start: 20060225, end: 20060226
  2. TAMIFLU [Suspect]
     Dosage: FORM: DRY SYRUP.
     Route: 048
     Dates: start: 20060227, end: 20060302
  3. TAMIFLU [Suspect]
     Route: 048
     Dates: start: 20070303
  4. SOLU-MEDROL [Concomitant]
     Route: 041
     Dates: start: 20060226, end: 20060228
  5. DIPRIVAN [Concomitant]
     Route: 041
     Dates: start: 20060226, end: 20060227
  6. CARBENIN [Concomitant]
     Route: 041
     Dates: start: 20060227, end: 20060302
  7. IMMUNE GLOBULIN INTRAVENOUS (HUMAN) [Concomitant]
     Route: 041
     Dates: start: 20060227, end: 20060301
  8. PREDOPA [Concomitant]
     Route: 041
     Dates: start: 20060227, end: 20060228
  9. ALEVIATIN [Concomitant]
     Route: 041
     Dates: start: 20060227, end: 20060228
  10. 1 CONCOMITANT DRUG [Concomitant]
     Dosage: DRUG REPORTED AS GRENOL.
     Route: 041
     Dates: start: 20060227, end: 20060228
  11. ZANTAC 150 [Concomitant]
     Route: 041
     Dates: start: 20060227, end: 20060302
  12. HEPARIN [Concomitant]
     Route: 041
     Dates: start: 20060227, end: 20060228
  13. OMEPRAZOLE [Concomitant]
     Route: 048
     Dates: start: 20060303, end: 20060329

REACTIONS (2)
  - ABNORMAL BEHAVIOUR [None]
  - ALTERED STATE OF CONSCIOUSNESS [None]
